FAERS Safety Report 11466268 (Version 2)
Quarter: 2015Q3

REPORT INFORMATION
  Report Type: Report from Study
  Country: US (occurrence: US)
  Receive Date: 20150907
  Receipt Date: 20150919
  Transmission Date: 20151125
  Serious: Yes (Other)
  Sender: FDA-Public Use
  Company Number: US-AMGEN-USASL2015090319

PATIENT
  Age: 59 Year
  Sex: Female
  Weight: 58.96 kg

DRUGS (4)
  1. RITUXAN [Suspect]
     Active Substance: RITUXIMAB
     Indication: PRODUCT USED FOR UNKNOWN INDICATION
     Dosage: UNK
     Route: 065
     Dates: start: 201302
  2. PROMACTA [Suspect]
     Active Substance: ELTROMBOPAG OLAMINE
     Indication: PRODUCT USED FOR UNKNOWN INDICATION
     Route: 065
  3. DECADRON [Concomitant]
     Active Substance: DEXAMETHASONE
     Dosage: 40 UNK, UNK
     Dates: start: 201002
  4. NPLATE [Suspect]
     Active Substance: ROMIPLOSTIM
     Indication: IMMUNE THROMBOCYTOPENIC PURPURA
     Dosage: 1 MUG/KG, QWK
     Route: 058
     Dates: start: 200908, end: 20140206

REACTIONS (13)
  - Platelet destruction increased [Recovered/Resolved]
  - Hypersensitivity [Recovered/Resolved]
  - Splenectomy [Unknown]
  - Fatigue [Unknown]
  - Weight decreased [Unknown]
  - Pain [Unknown]
  - Dizziness [Recovered/Resolved]
  - Haemolysis [Recovered/Resolved]
  - Depression [Unknown]
  - White blood cell count increased [Not Recovered/Not Resolved]
  - Petechiae [Unknown]
  - Anaemia [Unknown]
  - No therapeutic response [Unknown]

NARRATIVE: CASE EVENT DATE: 20091231
